FAERS Safety Report 16126420 (Version 12)
Quarter: 2019Q4

REPORT INFORMATION
  Report Type: Report from Study
  Country: CZ (occurrence: CZ)
  Receive Date: 20190328
  Receipt Date: 20191030
  Transmission Date: 20200122
  Serious: Yes (Hospitalization)
  Sender: FDA-Public Use
  Company Number: CZ-ROCHE-2289613

PATIENT
  Age: 68 Year
  Sex: Male
  Weight: 91 kg

DRUGS (28)
  1. CALTRATE [CALCIUM CARBONATE;COLECALCIFEROL] [Concomitant]
     Route: 048
     Dates: start: 20180626
  2. KALIUM CHLORATUM [Concomitant]
     Active Substance: POTASSIUM CHLORIDE
     Route: 048
     Dates: start: 20190813, end: 20190822
  3. AGEN [Concomitant]
     Active Substance: AMLODIPINE BESYLATE
     Route: 048
  4. DEXONA [DEXAMETHASONE] [Concomitant]
     Route: 042
     Dates: start: 20190228, end: 20190228
  5. ATEZOLIZUMAB. [Suspect]
     Active Substance: ATEZOLIZUMAB
     Indication: HORMONE-REFRACTORY PROSTATE CANCER
     Dosage: MOST RESENT DOSE ON PRIOR TO SAE ONSET: 28/FEB/2019 AT 11.05
     Route: 042
     Dates: start: 20180423
  6. ENZALUTAMIDE [Suspect]
     Active Substance: ENZALUTAMIDE
     Indication: HORMONE-REFRACTORY PROSTATE CANCER
     Dosage: MOST RESENT DOSE ON PRIOR TO SAE ONSET: 20/MAR/2019 AT 7.05
     Route: 048
     Dates: start: 20180423
  7. PREDNISON [Concomitant]
     Active Substance: PREDNISONE
     Route: 048
     Dates: start: 20190418
  8. NOVALGIN (METAMIZOLE SODIUM) [Concomitant]
     Active Substance: METAMIZOLE SODIUM
     Route: 048
     Dates: start: 20180629
  9. SOLU-MEDROL [Concomitant]
     Active Substance: METHYLPREDNISOLONE SODIUM SUCCINATE
     Route: 042
     Dates: start: 20190717, end: 20190721
  10. DEXONA [DEXAMETHASONE] [Concomitant]
     Route: 042
     Dates: start: 20190624, end: 20190624
  11. CLEXANE [Concomitant]
     Active Substance: ENOXAPARIN SODIUM
     Route: 058
     Dates: start: 20190821
  12. HELICID [OMEPRAZOLE] [Concomitant]
     Route: 048
     Dates: start: 20180629
  13. SOLU-MEDROL [Concomitant]
     Active Substance: METHYLPREDNISOLONE SODIUM SUCCINATE
     Route: 042
     Dates: start: 20190722, end: 20190722
  14. CALCIUM GLUCONICUM [CALCIUM GLUCONATE] [Concomitant]
     Route: 042
     Dates: start: 20190718, end: 20190718
  15. PREDNISON [Concomitant]
     Active Substance: PREDNISONE
     Route: 048
     Dates: start: 20180629, end: 20190417
  16. PREDNISON [Concomitant]
     Active Substance: PREDNISONE
     Route: 048
     Dates: start: 20190813, end: 20190815
  17. PREDNISON [Concomitant]
     Active Substance: PREDNISONE
     Route: 048
     Dates: start: 20180702, end: 2019
  18. PREDNISON [Concomitant]
     Active Substance: PREDNISONE
     Route: 048
     Dates: start: 20190729, end: 20190731
  19. PREDNISON [Concomitant]
     Active Substance: PREDNISONE
     Route: 048
     Dates: start: 20190801, end: 20190812
  20. FRAXIPARIN [Concomitant]
     Active Substance: NADROPARIN CALCIUM
     Route: 058
     Dates: start: 20190813, end: 20190815
  21. CLEXANE [Concomitant]
     Active Substance: ENOXAPARIN SODIUM
     Route: 058
     Dates: start: 20190816, end: 20190820
  22. LACTULOSE. [Concomitant]
     Active Substance: LACTULOSE
     Route: 048
     Dates: start: 20180806
  23. PREDNISON [Concomitant]
     Active Substance: PREDNISONE
     Route: 048
     Dates: start: 20190723, end: 20190725
  24. ZOLADEX [Concomitant]
     Active Substance: GOSERELIN ACETATE
     Route: 058
     Dates: start: 20180329
  25. PREDNISON [Concomitant]
     Active Substance: PREDNISONE
     Route: 048
     Dates: start: 20190726, end: 20190728
  26. DENOSUMAB [Concomitant]
     Active Substance: DENOSUMAB
     Route: 058
     Dates: start: 20180626
  27. ZOLADEX [Concomitant]
     Active Substance: GOSERELIN ACETATE
     Route: 058
     Dates: start: 201502
  28. OMEPRAZOL [OMEPRAZOLE] [Concomitant]
     Active Substance: OMEPRAZOLE
     Route: 048
     Dates: start: 20180629, end: 20190719

REACTIONS (2)
  - Fatigue [Recovered/Resolved]
  - Nephritis [Not Recovered/Not Resolved]

NARRATIVE: CASE EVENT DATE: 20190320
